FAERS Safety Report 12060322 (Version 1)
Quarter: 2016Q1

REPORT INFORMATION
  Report Type: Spontaneous
  Country: NO (occurrence: NO)
  Receive Date: 20160210
  Receipt Date: 20160210
  Transmission Date: 20160526
  Serious: Yes (Other)
  Sender: FDA-Public Use
  Company Number: NO-TEVA-631925ISR

PATIENT
  Age: 32 Year
  Sex: Male

DRUGS (1)
  1. OLANZAPINE TEVA [Suspect]
     Active Substance: OLANZAPINE
     Route: 048

REACTIONS (3)
  - Sudden onset of sleep [Unknown]
  - Depressed mood [Recovering/Resolving]
  - Memory impairment [Unknown]
